FAERS Safety Report 9399100 (Version 1)
Quarter: 2013Q3

REPORT INFORMATION
  Report Type: Report from Study
  Country: FR (occurrence: FR)
  Receive Date: 20130715
  Receipt Date: 20130715
  Transmission Date: 20140515
  Serious: Yes (Hospitalization)
  Sender: FDA-Public Use
  Company Number: FR-ROCHE-1247834

PATIENT
  Age: 47 Year
  Sex: Female
  Weight: 65 kg

DRUGS (5)
  1. TOCILIZUMAB [Suspect]
     Indication: RHEUMATOID ARTHRITIS
     Route: 041
     Dates: start: 20111027
  2. CORTANCYL [Concomitant]
     Route: 065
  3. ARAVA [Concomitant]
     Route: 065
  4. IXPRIM [Concomitant]
  5. DUROGESIC [Concomitant]
     Route: 065

REACTIONS (4)
  - Femur fracture [Recovered/Resolved]
  - Pseudarthrosis [Recovered/Resolved]
  - Urinary tract infection [Recovered/Resolved]
  - Urinary tract infection [Recovered/Resolved]
